FAERS Safety Report 18135890 (Version 1)
Quarter: 2020Q3

REPORT INFORMATION
  Report Type: Spontaneous
  Country: IT (occurrence: IT)
  Receive Date: 20200811
  Receipt Date: 20200811
  Transmission Date: 20201103
  Serious: Yes (Other)
  Sender: FDA-Public Use
  Company Number: NVSC2020IT207967

PATIENT
  Age: 58 Year
  Sex: Male

DRUGS (7)
  1. OXALIPLATIN. [Suspect]
     Active Substance: OXALIPLATIN
     Indication: ADENOCARCINOMA PANCREAS
     Dosage: 85 MG/M2
     Route: 065
  2. FLUOROURACIL. [Suspect]
     Active Substance: FLUOROURACIL
     Indication: ADENOCARCINOMA PANCREAS
     Dosage: 2400 MG/M2
     Route: 042
  3. IRINOTECAN [Suspect]
     Active Substance: IRINOTECAN
     Indication: ADENOCARCINOMA PANCREAS
     Dosage: 180 MG/M2
     Route: 042
  4. ATROPINE. [Concomitant]
     Active Substance: ATROPINE
     Indication: PROPHYLAXIS
     Dosage: 0.25 MG
     Route: 058
  5. DEXAMETHASONE. [Suspect]
     Active Substance: DEXAMETHASONE
     Indication: ADENOCARCINOMA PANCREAS
     Dosage: 10 MG
     Route: 065
  6. ONDANSETRON [Suspect]
     Active Substance: ONDANSETRON
     Indication: ADENOCARCINOMA PANCREAS
     Dosage: 12 MG
     Route: 042
  7. LEUCOVORIN. [Suspect]
     Active Substance: LEUCOVORIN
     Indication: ADENOCARCINOMA PANCREAS
     Dosage: 400 MG/M2
     Route: 042

REACTIONS (4)
  - Thrombocytopenia [Unknown]
  - Product use in unapproved indication [Unknown]
  - Dysarthria [Recovered/Resolved]
  - Therapy partial responder [Unknown]
